FAERS Safety Report 16966880 (Version 2)
Quarter: 2019Q4

REPORT INFORMATION
  Report Type: Spontaneous
  Country: US (occurrence: US)
  Receive Date: 20191028
  Receipt Date: 20191108
  Transmission Date: 20200122
  Serious: No
  Sender: FDA-Public Use
  Company Number: US-SA-2019SA296114

PATIENT
  Age: 65 Year
  Sex: Female

DRUGS (2)
  1. PRALUENT [Suspect]
     Active Substance: ALIROCUMAB
     Indication: HYPERLIPIDAEMIA
     Dosage: 150 MG, OTHER
     Route: 058
     Dates: start: 2019
  2. PRALUENT [Suspect]
     Active Substance: ALIROCUMAB
     Indication: BLOOD CHOLESTEROL
     Dosage: 150 MG, OTHER
     Route: 058
     Dates: start: 201909, end: 2019

REACTIONS (8)
  - Device issue [Unknown]
  - Mobility decreased [Unknown]
  - Cholecystectomy [Unknown]
  - Unevaluable event [Unknown]
  - Muscle disorder [Unknown]
  - Product dose omission [Unknown]
  - Scar [Unknown]
  - Arteriosclerosis coronary artery [Unknown]

NARRATIVE: CASE EVENT DATE: 2019
